FAERS Safety Report 16324898 (Version 9)
Quarter: 2021Q2

REPORT INFORMATION
  Report Type: Other
  Country: CA (occurrence: CA)
  Receive Date: 20190517
  Receipt Date: 20210608
  Transmission Date: 20210716
  Serious: Yes (Hospitalization, Other)
  Sender: FDA-Public Use
  Company Number: CA-ROCHE-1556366

PATIENT
  Age: 57 Year
  Sex: Male
  Weight: 128 kg

DRUGS (34)
  1. DIPHENHYDRAMINE HCL [Concomitant]
     Active Substance: DIPHENHYDRAMINE HYDROCHLORIDE
     Indication: PREMEDICATION
     Route: 048
     Dates: start: 20150324
  2. METHYLPREDNISOLONE. [Concomitant]
     Active Substance: METHYLPREDNISOLONE
     Indication: PREMEDICATION
     Route: 042
     Dates: start: 20150324
  3. RITUXAN [Suspect]
     Active Substance: RITUXIMAB
     Indication: CHRONIC GRAFT VERSUS HOST DISEASE
     Dosage: ON 14/APR/2015, LAST DOSE (ON HOLD)?DATE OF MOST RECENT DOSE OF RITUXIMAB INFUSION: 13/MAY/2019
     Route: 042
     Dates: start: 20150324
  4. RITUXAN [Suspect]
     Active Substance: RITUXIMAB
     Indication: STEM CELL TRANSPLANT
     Route: 042
     Dates: start: 20180907, end: 20200520
  5. FLOVENT [Concomitant]
     Active Substance: FLUTICASONE PROPIONATE
  6. VALACYCLOVIR [Concomitant]
     Active Substance: VALACYCLOVIR HYDROCHLORIDE
  7. ACLASTA [Concomitant]
     Active Substance: ZOLEDRONIC ACID
     Dosage: DUE FOR NEXT INFUSION JAN 2015,WILL RECEIVE SOON
  8. HYDROXYCHLOROQUINE [Concomitant]
     Active Substance: HYDROXYCHLOROQUINE
     Route: 048
  9. VALACYCLOVIR [Concomitant]
     Active Substance: VALACYCLOVIR HYDROCHLORIDE
  10. CYCLOSPORINE. [Concomitant]
     Active Substance: CYCLOSPORINE
     Dosage: 100 MG MORNING AND 50 MG BEDTIME?130 MG IN THE MORNING AND 50 MG IN THE EVENING
  11. VALTREX [Concomitant]
     Active Substance: VALACYCLOVIR HYDROCHLORIDE
  12. SEPTRA DS [Concomitant]
     Active Substance: SULFAMETHOXAZOLE\TRIMETHOPRIM
     Dosage: 1 DAILY
  13. BENADRYL [Concomitant]
     Active Substance: DIPHENHYDRAMINE HYDROCHLORIDE
     Indication: PREMEDICATION
     Route: 048
     Dates: start: 20150324
  14. ERYTHROMYCIN. [Concomitant]
     Active Substance: ERYTHROMYCIN
  15. FLUCONAZOLE. [Concomitant]
     Active Substance: FLUCONAZOLE
  16. AMLODIPINE [Concomitant]
     Active Substance: AMLODIPINE BESYLATE
     Route: 048
  17. PREDNISONE. [Concomitant]
     Active Substance: PREDNISONE
     Dosage: OFF FOR OVER A MONTH
  18. TRAMADOL. [Concomitant]
     Active Substance: TRAMADOL
  19. METFORMIN [Concomitant]
     Active Substance: METFORMIN HYDROCHLORIDE
     Dosage: TWICE DIALY
  20. AZITHROMYCIN ANHYDROUS. [Concomitant]
     Active Substance: AZITHROMYCIN ANHYDROUS
     Dosage: MONDAY, WEDNESDAY AND FRIDAY
  21. METHOTREXATE. [Suspect]
     Active Substance: METHOTREXATE
     Indication: PRODUCT USED FOR UNKNOWN INDICATION
     Route: 048
  22. ACETAMINOPHEN. [Concomitant]
     Active Substance: ACETAMINOPHEN
     Route: 048
     Dates: start: 20190429
  23. SALBUTAMOL [Concomitant]
     Active Substance: ALBUTEROL
  24. VENTOLIN [Concomitant]
     Active Substance: ALBUTEROL SULFATE
     Dosage: REQUIRED
     Route: 048
  25. ZOPICLONE [Concomitant]
     Active Substance: ZOPICLONE
  26. PANTOPRAZOLE [Concomitant]
     Active Substance: PANTOPRAZOLE
     Route: 048
  27. ACETAMINOPHEN. [Concomitant]
     Active Substance: ACETAMINOPHEN
     Indication: PREMEDICATION
     Route: 048
     Dates: start: 20150324
  28. DICLOFENAC [Concomitant]
     Active Substance: DICLOFENAC
     Route: 048
  29. ZOLEDRONIC ACID [Concomitant]
     Active Substance: ZOLEDRONIC ACID
     Dosage: NEXT DUE SEPTEMBER 16 TH
  30. OXYGEN. [Concomitant]
     Active Substance: OXYGEN
  31. SOLU?MEDROL [Concomitant]
     Active Substance: METHYLPREDNISOLONE SODIUM SUCCINATE
     Route: 042
     Dates: start: 20150324
  32. SULFASALAZINE. [Concomitant]
     Active Substance: SULFASALAZINE
     Route: 048
  33. FOLIC ACID. [Concomitant]
     Active Substance: FOLIC ACID
     Route: 048
  34. CALCIUM [Concomitant]
     Active Substance: CALCIUM

REACTIONS (29)
  - Drug hypersensitivity [Unknown]
  - Blood pressure fluctuation [Unknown]
  - Drug ineffective [Unknown]
  - Respiratory rate increased [Unknown]
  - Blood pressure decreased [Unknown]
  - Off label use [Unknown]
  - Cataract [Not Recovered/Not Resolved]
  - Pneumonia bacterial [Unknown]
  - Hot flush [Unknown]
  - Fatigue [Unknown]
  - Dyspnoea exertional [Unknown]
  - Blood pressure increased [Unknown]
  - Injection site extravasation [Recovered/Resolved]
  - Dyspnoea [Not Recovered/Not Resolved]
  - Chorioretinopathy [Unknown]
  - Blood pressure diastolic abnormal [Unknown]
  - Blood pressure systolic increased [Unknown]
  - Retinal detachment [Unknown]
  - Conjunctival hyperaemia [Unknown]
  - Oedema peripheral [Unknown]
  - Alanine aminotransferase increased [Unknown]
  - Weight increased [Unknown]
  - Weight decreased [Unknown]
  - Pneumonia [Unknown]
  - Oxygen saturation decreased [Unknown]
  - Infusion related reaction [Unknown]
  - Blood pressure fluctuation [Unknown]
  - Chronic obstructive pulmonary disease [Unknown]
  - Arthralgia [Unknown]

NARRATIVE: CASE EVENT DATE: 20150324
